FAERS Safety Report 16150292 (Version 3)
Quarter: 2019Q3

REPORT INFORMATION
  Report Type: Spontaneous
  Country: NZ (occurrence: NZ)
  Receive Date: 20190403
  Receipt Date: 20190806
  Transmission Date: 20191004
  Serious: Yes (Other)
  Sender: FDA-Public Use
  Company Number: NZ-APOTEX-2019AP010580

PATIENT
  Sex: Male

DRUGS (5)
  1. DILANTIN [Concomitant]
     Active Substance: PHENYTOIN
     Indication: SEIZURE
     Dosage: 290 MG, UNK (DAILY)
     Route: 065
     Dates: start: 1975
  2. EPILAM [Concomitant]
     Indication: SEIZURE
     Dosage: 400 MG, UNK (DAILY)
     Route: 065
  3. APO-GABAPENTIN [Suspect]
     Active Substance: GABAPENTIN
     Indication: PRODUCT USED FOR UNKNOWN INDICATION
     Dosage: UNK
     Route: 065
  4. SOTALOL. [Concomitant]
     Active Substance: SOTALOL
     Indication: CARDIAC DISORDER
     Dosage: UNK
     Route: 065
     Dates: start: 1975
  5. NITRAZEPAM [Concomitant]
     Active Substance: NITRAZEPAM
     Indication: PRODUCT USED FOR UNKNOWN INDICATION
     Dosage: UNK
     Route: 065
     Dates: start: 1976

REACTIONS (11)
  - Seizure [Recovered/Resolved]
  - Drug ineffective [Unknown]
  - Paraesthesia [Recovered/Resolved]
  - Hyperhidrosis [Unknown]
  - Product quality issue [Unknown]
  - Ageusia [Unknown]
  - Fluid retention [Unknown]
  - Product substitution issue [Unknown]
  - Condition aggravated [Recovered/Resolved]
  - Withdrawal syndrome [Unknown]
  - Feeling cold [Unknown]

NARRATIVE: CASE EVENT DATE: 20190107
